FAERS Safety Report 9727069 (Version 1)
Quarter: 2013Q4

REPORT INFORMATION
  Report Type: Spontaneous
  Country: JP (occurrence: JP)
  Receive Date: 20131203
  Receipt Date: 20131203
  Transmission Date: 20140711
  Serious: Yes (Death)
  Sender: FDA-Public Use
  Company Number: JP-MALLINCKRODT-T201305013

PATIENT
  Age: 56 Year
  Sex: Male

DRUGS (11)
  1. METHADONE [Suspect]
     Indication: CANCER PAIN
     Dosage: 5 MG, (15 MG DAILY DOSE)
     Route: 048
     Dates: start: 20131010, end: 20131024
  2. OXINORM                            /00045603/ [Concomitant]
     Dosage: 5 MG, PRN
     Route: 048
     Dates: start: 20131003
  3. FENTANYL CITRATE [Concomitant]
     Dosage: 100 UG, PRN
     Route: 048
     Dates: start: 20131011
  4. AMITIZA [Concomitant]
     Dosage: 48 UG, UNK
     Route: 048
     Dates: start: 20131011, end: 20131011
  5. ELCATONIN [Concomitant]
     Dosage: 80 DF
     Route: 051
     Dates: start: 20131011, end: 20131027
  6. BETAMETHASONE SODIUM PHOSPHATE [Concomitant]
     Dosage: 4 MG, UNK
     Route: 051
     Dates: start: 20131023, end: 20131023
  7. BETAMETHASONE SODIUM PHOSPHATE [Concomitant]
     Dosage: 8 MG, UNK
     Route: 051
     Dates: start: 20131024, end: 20131027
  8. BETAMETHASONE SODIUM PHOSPHATE [Concomitant]
     Dosage: 4 MG, UNK
     Route: 051
     Dates: start: 20131028, end: 20131028
  9. ROPION [Concomitant]
     Dosage: 100 MG, UNK
     Route: 051
     Dates: start: 20131025, end: 20131027
  10. ROPION [Concomitant]
     Dosage: 50 MG, UNK
     Route: 051
     Dates: start: 20131028, end: 20131028
  11. MORPHINE HYDROCHLORIDE [Concomitant]
     Dosage: 10 MG, UNK
     Route: 051
     Dates: start: 20131026, end: 20131028

REACTIONS (1)
  - Lung neoplasm malignant [Fatal]
